FAERS Safety Report 7676520-3 (Version None)
Quarter: 2011Q3

REPORT INFORMATION
  Report Type: 
  Country: None (occurrence: None)
  Receive Date: 20110805
  Receipt Date: 20110727
  Transmission Date: 20111222
  Serious: Yes (Hospitalization)
  Sender: FDA-Public Use
  Company Number: LTI2011A00222

PATIENT
  Age: 56 Year
  Sex: Male

DRUGS (9)
  1. DIAMICRON(GLICLAZIDE) [Concomitant]
  2. METFORMIN HCL [Concomitant]
  3. ACTOS [Suspect]
     Indication: TYPE 2 DIABETES MELLITUS
     Dosage: 15MG (15MG 1 IN 1 D) ORAL : 30 MG (30 MG,1 IN 1 D)
     Route: 048
     Dates: start: 20041206, end: 20091230
  4. ACTOS [Suspect]
     Indication: TYPE 2 DIABETES MELLITUS
     Dosage: 15MG (15MG 1 IN 1 D) ORAL : 30 MG (30 MG,1 IN 1 D)
     Route: 048
     Dates: start: 20040909, end: 20041206
  5. EZETIMIBE/SIMVASTATIN [Concomitant]
  6. FLECAINIDE ACETATE [Concomitant]
  7. SECTRAL [Concomitant]
  8. IRBESARTAN AND HYDROCHLOROTHIAZIDE [Concomitant]
  9. ASPIRIN [Concomitant]

REACTIONS (1)
  - BLADDER TRANSITIONAL CELL CARCINOMA [None]
